FAERS Safety Report 8327627-9 (Version None)
Quarter: 2012Q2

REPORT INFORMATION
  Report Type: 
  Country: None (occurrence: None)
  Receive Date: 20120502
  Receipt Date: 20120423
  Transmission Date: 20120825
  Serious: Yes (Other)
  Sender: FDA-Public Use
  Company Number: US-BAYER-2012-031459

PATIENT
  Age: 21 Year
  Sex: Female
  Weight: 59.41 kg

DRUGS (2)
  1. MIRENA [Suspect]
     Indication: CONTRACEPTION
     Dosage: 20 MCG/24HR, CONT
     Route: 015
     Dates: start: 20111212, end: 20120309
  2. MIRENA [Suspect]
     Indication: DYSMENORRHOEA

REACTIONS (4)
  - PAIN [None]
  - UTERINE PERFORATION [None]
  - ABDOMINAL PAIN [None]
  - DEVICE DISLOCATION [None]
